FAERS Safety Report 20072804 (Version 1)
Quarter: 2021Q4

REPORT INFORMATION
  Report Type: Spontaneous
  Country: JP (occurrence: JP)
  Receive Date: 20211116
  Receipt Date: 20211116
  Transmission Date: 20220303
  Serious: Yes (Other)
  Sender: FDA-Public Use
  Company Number: JP-SA-2021SA376955

PATIENT
  Age: 68 Year
  Sex: Male

DRUGS (6)
  1. OXALIPLATIN [Suspect]
     Active Substance: OXALIPLATIN
     Indication: Colorectal cancer
     Dosage: 999 MG/M2, QCY(THERAPEUTIC CYCLES OF OXALIPLATIN (TIMES)-12 )
  2. OXALIPLATIN [Suspect]
     Active Substance: OXALIPLATIN
     Dosage: 1680 MG/BODY, QCY
  3. BEVACIZUMAB [Concomitant]
     Active Substance: BEVACIZUMAB
     Indication: Colorectal cancer
     Dosage: 5 MG/KG, QCY(90-MIN INFUSION ON DAY 1)
  4. LEUCOVORIN [Concomitant]
     Active Substance: LEUCOVORIN
     Indication: Colorectal cancer
     Dosage: 200 MG/M2, QCY(2-H INFUSION)
  5. FLUOROURACIL [Concomitant]
     Active Substance: FLUOROURACIL
     Indication: Colorectal cancer
     Dosage: 400 MG/M2, QCY
     Route: 040
  6. FLUOROURACIL [Concomitant]
     Active Substance: FLUOROURACIL
     Dosage: 2400 MG/M2, QCY(46-H INFUSION)
     Route: 040

REACTIONS (4)
  - Varices oesophageal [Unknown]
  - Oesophageal varices haemorrhage [Unknown]
  - Thrombocytopenia [Unknown]
  - Splenomegaly [Unknown]
